FAERS Safety Report 24200612 (Version 1)
Quarter: 2024Q3

REPORT INFORMATION
  Report Type: Spontaneous
  Country: US (occurrence: US)
  Receive Date: 20240812
  Receipt Date: 20240812
  Transmission Date: 20241016
  Serious: No
  Sender: ANI
  Company Number: US-ANIPHARMA-2024-US-034387

PATIENT
  Age: 55 Year
  Sex: Female

DRUGS (1)
  1. CORTICOTROPIN [Suspect]
     Active Substance: CORTICOTROPIN
     Indication: Pulmonary sarcoidosis
     Dosage: 80 UNITS (1ML) SUBCUTANEOUSLY TWO TIMES A WEEK AS DIRECTED
     Route: 058
     Dates: start: 202405

REACTIONS (3)
  - Nasopharyngitis [Unknown]
  - Contraindicated product administered [Not Recovered/Not Resolved]
  - Chest pain [Unknown]
